FAERS Safety Report 21186405 (Version 6)
Quarter: 2022Q4

REPORT INFORMATION
  Report Type: Report from Study
  Country: GB (occurrence: GB)
  Receive Date: 20220808
  Receipt Date: 20221110
  Transmission Date: 20230113
  Serious: Yes (Death, Hospitalization, Other)
  Sender: FDA-Public Use
  Company Number: GB-IMMUNOCORE, LTD-2022-IMC-001013

PATIENT

DRUGS (2)
  1. TEBENTAFUSP [Suspect]
     Active Substance: TEBENTAFUSP
     Indication: Uveal melanoma
     Dosage: 20 MICROGRAM, SINGLE, DOSE 1
     Dates: start: 20220719, end: 20220719
  2. TEBENTAFUSP [Suspect]
     Active Substance: TEBENTAFUSP
     Indication: Ocular melanoma
     Dosage: 30 MICROGRAM, SINGLE, SECOND INFUSION
     Dates: start: 20220726, end: 20220726

REACTIONS (10)
  - Disseminated intravascular coagulation [Fatal]
  - Lactic acidosis [Recovered/Resolved]
  - Hypotension [Fatal]
  - Malignant neoplasm progression [Fatal]
  - Oxygen saturation decreased [Fatal]
  - Unresponsive to stimuli [Fatal]
  - Hypertension [Recovered/Resolved]
  - Cytokine release syndrome [Recovered/Resolved with Sequelae]
  - Chills [Recovered/Resolved]
  - Pyrexia [Not Recovered/Not Resolved]

NARRATIVE: CASE EVENT DATE: 20220701
